FAERS Safety Report 24697649 (Version 1)
Quarter: 2024Q4

REPORT INFORMATION
  Report Type: Spontaneous
  Country: AT (occurrence: AT)
  Receive Date: 20241204
  Receipt Date: 20241204
  Transmission Date: 20250115
  Serious: Yes (Other)
  Sender: VERTEX
  Company Number: None

PATIENT
  Age: 4 Year
  Sex: Male
  Weight: 17 kg

DRUGS (5)
  1. ELEXACAFTOR\IVACAFTOR\TEZACAFTOR [Suspect]
     Active Substance: ELEXACAFTOR\IVACAFTOR\TEZACAFTOR
     Indication: Cystic fibrosis
     Dosage: 75 MG IVACAFTOR/ 50 MG TEZACAFTOR/ 100 MG ELEXACAFTOR
     Route: 048
     Dates: start: 20240123, end: 20240503
  2. ELEXACAFTOR\IVACAFTOR\TEZACAFTOR [Suspect]
     Active Substance: ELEXACAFTOR\IVACAFTOR\TEZACAFTOR
     Dosage: REDUCED DOSE 37.5 MG IVACAFTOR /25 MG TEZACAFTOR /50 MG ELEXACAFTOR
     Route: 048
     Dates: start: 2024, end: 20240727
  3. KALYDECO [Suspect]
     Active Substance: IVACAFTOR
     Indication: Cystic fibrosis
     Dosage: 75 MILLIGRAM IVACAFTOR
     Route: 048
     Dates: start: 20240123, end: 20240503
  4. KALYDECO [Suspect]
     Active Substance: IVACAFTOR
     Dosage: 50MG IVACAFTOR
     Route: 048
     Dates: start: 2024, end: 20240727
  5. MOMETASONE [Concomitant]
     Active Substance: MOMETASONE
     Dosage: NASAL SPRAY
     Route: 045

REACTIONS (6)
  - Anxiety [Recovered/Resolved]
  - Mood swings [Recovered/Resolved]
  - Aggression [Recovered/Resolved]
  - Nausea [Recovered/Resolved]
  - Hallucination, auditory [Recovered/Resolved]
  - Sleep disorder [Recovered/Resolved]

NARRATIVE: CASE EVENT DATE: 20240317
